FAERS Safety Report 10008209 (Version 1)
Quarter: 2014Q1

REPORT INFORMATION
  Report Type: Spontaneous
  Country: GB (occurrence: GB)
  Receive Date: 20140313
  Receipt Date: 20140313
  Transmission Date: 20141002
  Serious: Yes (Other)
  Sender: FDA-Public Use
  Company Number: GB-ACTAVIS-2014-04287

PATIENT
  Age: 41 Year
  Sex: Female
  Weight: 70 kg

DRUGS (1)
  1. TRAMADOL (UNKNOWN) [Suspect]
     Indication: WRIST FRACTURE
     Dosage: 100 MG, UNKNOWN
     Route: 048
     Dates: start: 20140214, end: 20140215

REACTIONS (1)
  - Grand mal convulsion [Recovered/Resolved]
